FAERS Safety Report 20323991 (Version 4)
Quarter: 2022Q2

REPORT INFORMATION
  Report Type: Report from Study
  Country: US (occurrence: US)
  Receive Date: 20220111
  Receipt Date: 20220518
  Transmission Date: 20220721
  Serious: Yes (Hospitalization, Other)
  Sender: FDA-Public Use
  Company Number: US-MALLINCKRODT-T202200053

PATIENT
  Sex: Female
  Weight: 71 kg

DRUGS (2)
  1. CORTICOTROPIN [Suspect]
     Active Substance: CORTICOTROPIN
     Indication: Rheumatoid arthritis
     Dosage: 80 UNITS, TWICE WEEKLY
     Route: 058
     Dates: start: 20211227
  2. COVID-19 VACCINE [Concomitant]
     Indication: COVID-19 immunisation
     Dosage: UNK
     Route: 065

REACTIONS (18)
  - Diabetes mellitus [Unknown]
  - Mycoplasma infection [Not Recovered/Not Resolved]
  - Tachycardia [Not Recovered/Not Resolved]
  - Cardiac disorder [Unknown]
  - Cellulitis [Not Recovered/Not Resolved]
  - Loss of consciousness [Unknown]
  - Syncope [Unknown]
  - Immunodeficiency [Unknown]
  - Dyspnoea [Unknown]
  - Haemoglobin decreased [Not Recovered/Not Resolved]
  - Chest expansion decreased [Unknown]
  - Blood glucose decreased [Unknown]
  - Gait disturbance [Recovering/Resolving]
  - Gastritis [Not Recovered/Not Resolved]
  - Dizziness [Unknown]
  - Joint swelling [Unknown]
  - Abdominal distension [Recovered/Resolved]
  - Injection site bruising [Not Recovered/Not Resolved]
